FAERS Safety Report 9506154 (Version 1)
Quarter: 2013Q1

REPORT INFORMATION
  Report Type: Spontaneous
  Country: US (occurrence: None)
  Receive Date: 20130301
  Receipt Date: 20130301
  Transmission Date: 20140127
  Serious: Yes (Congenital Anomaly, Other)
  Sender: FDA-Public Use
  Company Number: PHEH2012US023922

PATIENT
  Sex: Female

DRUGS (2)
  1. CARBAMAZEPINE [Suspect]
     Indication: CONVULSION
  2. PHENYTOIN (PHENYTOIN) [Suspect]

REACTIONS (3)
  - Encephalocele [None]
  - Cerebral dysgenesis [None]
  - Strabismus [None]
